FAERS Safety Report 7396059-2 (Version None)
Quarter: 2011Q2

REPORT INFORMATION
  Report Type: 
  Country: None (occurrence: None)
  Receive Date: 20110406
  Receipt Date: 20110325
  Transmission Date: 20111010
  Serious: Yes (Hospitalization)
  Sender: FDA-Public Use
  Company Number: PT-JNJFOC-20110312336

PATIENT
  Age: 77 Year
  Sex: Female
  Weight: 58 kg

DRUGS (11)
  1. GOLIMUMAB [Suspect]
     Indication: RHEUMATOID ARTHRITIS
     Route: 058
  2. GOLIMUMAB [Suspect]
     Route: 058
  3. ALPRAZOLAM [Concomitant]
     Route: 048
  4. METHOTREXATE [Suspect]
     Indication: ILL-DEFINED DISORDER
     Route: 048
  5. SIMVASTATIN [Concomitant]
     Route: 048
  6. ENALAPRIL [Concomitant]
     Route: 048
  7. ATENOLOL [Concomitant]
     Route: 048
  8. ZANIDIP [Concomitant]
     Route: 048
  9. OSSEOR [Concomitant]
     Route: 048
  10. LANZOPRAZOLE [Concomitant]
     Route: 048
  11. FOLIC ACID [Concomitant]
     Route: 048

REACTIONS (1)
  - RESPIRATORY TRACT INFECTION [None]
